FAERS Safety Report 13574297 (Version 1)
Quarter: 2017Q2

REPORT INFORMATION
  Report Type: Spontaneous
  Country: CN (occurrence: CN)
  Receive Date: 20170523
  Receipt Date: 20170523
  Transmission Date: 20170830
  Serious: Yes (Life-Threatening, Hospitalization, Other)
  Sender: FDA-Public Use
  Company Number: CN-JNJFOC-20170509057

PATIENT

DRUGS (2)
  1. ACETAMINOPHEN. [Suspect]
     Active Substance: ACETAMINOPHEN
     Route: 065
  2. ACETAMINOPHEN. [Suspect]
     Active Substance: ACETAMINOPHEN
     Indication: PRODUCT USED FOR UNKNOWN INDICATION
     Route: 065

REACTIONS (11)
  - Encephalopathy [Unknown]
  - Toxic epidermal necrolysis [Unknown]
  - Respiratory disorder [Unknown]
  - Hepatitis [Unknown]
  - Myocarditis [Unknown]
  - Disseminated intravascular coagulation [Unknown]
  - Pyrexia [Unknown]
  - Leukocytosis [Unknown]
  - Renal impairment [Unknown]
  - Gastrointestinal disorder [Unknown]
  - Stevens-Johnson syndrome [Unknown]
